FAERS Safety Report 25044524 (Version 1)
Quarter: 2025Q1

REPORT INFORMATION
  Report Type: Spontaneous
  Country: FR (occurrence: FR)
  Receive Date: 20250306
  Receipt Date: 20250306
  Transmission Date: 20250409
  Serious: Yes (Death)
  Sender: SANDOZ
  Company Number: None

PATIENT
  Age: 89 Year
  Sex: Male
  Weight: 71 kg

DRUGS (7)
  1. ALPRAZOLAM [Interacting]
     Active Substance: ALPRAZOLAM
     Indication: Product used for unknown indication
     Dosage: 0.130MG QD
     Route: 048
  2. BISOPROLOL FUMARATE [Interacting]
     Active Substance: BISOPROLOL FUMARATE
     Indication: Atrial fibrillation
     Dosage: 5.000MG QD
     Route: 048
     Dates: start: 20241001
  3. ELIQUIS [Interacting]
     Active Substance: APIXABAN
     Indication: Atrial fibrillation
     Dosage: 5.000MG QD
     Route: 048
     Dates: start: 20241001
  4. FENTANYL [Interacting]
     Active Substance: FENTANYL
     Indication: Pain
     Dosage: INTRO LE 27/01 ? 25 ?G/J, AUGMENTATION DE POSO LE 08/02)
     Route: 062
     Dates: start: 20250208
  5. MIANSERIN HYDROCHLORIDE [Interacting]
     Active Substance: MIANSERIN HYDROCHLORIDE
     Indication: Aggression
     Dosage: 30.000MG QD
     Route: 048
     Dates: start: 20250208
  6. PREDNISONE [Interacting]
     Active Substance: PREDNISONE
     Indication: Pemphigoid
     Dosage: 14.000MG QD
     Route: 048
     Dates: start: 20241101
  7. RISPERIDONE [Interacting]
     Active Substance: RISPERIDONE
     Indication: Agitation
     Route: 048
     Dates: start: 20250209, end: 20250209

REACTIONS (2)
  - Haematoma [Fatal]
  - Fall [Fatal]

NARRATIVE: CASE EVENT DATE: 20250210
